FAERS Safety Report 14152585 (Version 4)
Quarter: 2018Q1

REPORT INFORMATION
  Report Type: Spontaneous
  Country: JP (occurrence: JP)
  Receive Date: 20171102
  Receipt Date: 20180215
  Transmission Date: 20180508
  Serious: Yes (Death, Hospitalization, Other)
  Sender: FDA-Public Use
  Company Number: JP-AMGEN-JPNSP2017165987

PATIENT
  Age: 64 Year
  Sex: Male

DRUGS (65)
  1. TS-1 [Concomitant]
     Active Substance: GIMERACIL\OTERACIL\TEGAFUR
     Dosage: 100 MG, UNK
     Route: 048
     Dates: start: 20150408
  2. ELPLAT [Concomitant]
     Active Substance: OXALIPLATIN
     Dosage: 130 MG, UNK
     Route: 041
     Dates: start: 20150617, end: 20150617
  3. ALOXI [Concomitant]
     Active Substance: PALONOSETRON HYDROCHLORIDE
     Dosage: 50 ML, UNK
     Route: 041
     Dates: start: 20150501, end: 20150501
  4. DEXART [Concomitant]
     Active Substance: DEXAMETHASONE SODIUM PHOSPHATE
     Dosage: 2.5 ML, UNK
     Route: 041
     Dates: start: 20150318, end: 20150318
  5. DEXART [Concomitant]
     Active Substance: DEXAMETHASONE SODIUM PHOSPHATE
     Dosage: 2.5 ML, UNK
     Route: 041
     Dates: start: 20150729, end: 20150729
  6. RITUXAN [Suspect]
     Active Substance: RITUXIMAB
     Indication: LYMPHOMA
     Dosage: 650 MG, 1X/3WEEKS
     Route: 041
     Dates: start: 20151008
  7. THERARUBICIN                       /00963101/ [Suspect]
     Active Substance: PIRARUBICIN HYDROCHLORIDE
     Indication: LYMPHOMA
     Dosage: 45 MG, UNK
     Route: 042
     Dates: start: 20151009
  8. TS-1 [Concomitant]
     Active Substance: GIMERACIL\OTERACIL\TEGAFUR
     Dosage: 100 MG, UNK
     Route: 048
     Dates: start: 20150617
  9. ELPLAT [Concomitant]
     Active Substance: OXALIPLATIN
     Dosage: 130 MG, UNK
     Route: 041
     Dates: start: 20150527, end: 20150527
  10. ELPLAT [Concomitant]
     Active Substance: OXALIPLATIN
     Dosage: 110 MG, UNK
     Route: 041
     Dates: start: 20150729, end: 20150729
  11. SOLU-MEDROL [Concomitant]
     Active Substance: METHYLPREDNISOLONE SODIUM SUCCINATE
     Indication: DIFFUSE LARGE B-CELL LYMPHOMA
     Dosage: 40 MG, 1X/3WEEKS
     Route: 041
     Dates: start: 20151008, end: 20151008
  12. FAMOTIDINE. [Concomitant]
     Active Substance: FAMOTIDINE
     Dosage: 10 MG, BID
     Route: 048
     Dates: start: 20150121
  13. GLIMEPIRIDE. [Concomitant]
     Active Substance: GLIMEPIRIDE
     Dosage: 1 MG, QD
     Route: 048
  14. FEBURIC [Concomitant]
     Active Substance: FEBUXOSTAT
     Dosage: 10 MG, QD
     Route: 048
     Dates: start: 20151006
  15. TS-1 [Concomitant]
     Active Substance: GIMERACIL\OTERACIL\TEGAFUR
     Dosage: 100 MG, UNK
     Route: 048
     Dates: start: 20150225
  16. TS-1 [Concomitant]
     Active Substance: GIMERACIL\OTERACIL\TEGAFUR
     Dosage: 100 MG, UNK
     Route: 048
     Dates: start: 20150708
  17. ELPLAT [Concomitant]
     Active Substance: OXALIPLATIN
     Dosage: 130 MG, UNK
     Route: 041
     Dates: start: 20150501, end: 20150501
  18. ALOXI [Concomitant]
     Active Substance: PALONOSETRON HYDROCHLORIDE
     Indication: GASTRIC CANCER
     Dosage: 50 ML, UNK
     Route: 041
     Dates: start: 20150127, end: 20150127
  19. ALOXI [Concomitant]
     Active Substance: PALONOSETRON HYDROCHLORIDE
     Dosage: 50 ML, UNK
     Route: 041
     Dates: start: 20150826, end: 20150826
  20. ALOXI [Concomitant]
     Active Substance: PALONOSETRON HYDROCHLORIDE
     Dosage: 50 ML, UNK
     Route: 041
     Dates: start: 20151009, end: 20151009
  21. DEXART [Concomitant]
     Active Substance: DEXAMETHASONE SODIUM PHOSPHATE
     Indication: GASTRIC CANCER
     Dosage: 2.5 ML, UNK
     Route: 041
     Dates: start: 20150127, end: 20150127
  22. DEXART [Concomitant]
     Active Substance: DEXAMETHASONE SODIUM PHOSPHATE
     Dosage: 2.5 ML, UNK
     Route: 041
     Dates: start: 20150225, end: 20150225
  23. DEXART [Concomitant]
     Active Substance: DEXAMETHASONE SODIUM PHOSPHATE
     Dosage: 2.5 ML, UNK
     Route: 041
     Dates: start: 20150501, end: 20150501
  24. DEXART [Concomitant]
     Active Substance: DEXAMETHASONE SODIUM PHOSPHATE
     Dosage: 2.5 ML, UNK
     Route: 041
     Dates: start: 20150826, end: 20150826
  25. VOGLIBOSE [Concomitant]
     Active Substance: VOGLIBOSE
     Dosage: 0.2 MG, TID
     Route: 048
  26. G-LASTA [Suspect]
     Active Substance: PEGFILGRASTIM
     Dosage: UNK
     Route: 058
     Dates: start: 20151010
  27. TS-1 [Concomitant]
     Active Substance: GIMERACIL\OTERACIL\TEGAFUR
     Dosage: 100 MG, UNK
     Route: 048
     Dates: start: 20150501
  28. ELPLAT [Concomitant]
     Active Substance: OXALIPLATIN
     Dosage: 130 MG, UNK
     Route: 041
     Dates: start: 20150708, end: 20150708
  29. ALOXI [Concomitant]
     Active Substance: PALONOSETRON HYDROCHLORIDE
     Dosage: 50 ML, UNK
     Route: 041
     Dates: start: 20150318, end: 20150318
  30. DEXART [Concomitant]
     Active Substance: DEXAMETHASONE SODIUM PHOSPHATE
     Dosage: 2.5 ML, UNK
     Route: 041
     Dates: start: 20150527, end: 20150527
  31. TERPERAN [Concomitant]
     Active Substance: METOCLOPRAMIDE HYDROCHLORIDE
     Dosage: 5 MG, TID
     Route: 048
     Dates: start: 20150113
  32. ARCRANE [Concomitant]
     Dosage: 20 ML, TID
     Route: 048
     Dates: start: 20150121
  33. TS-1 [Concomitant]
     Active Substance: GIMERACIL\OTERACIL\TEGAFUR
     Dosage: 100 MG, UNK
     Route: 048
     Dates: start: 20150527
  34. TS-1 [Concomitant]
     Active Substance: GIMERACIL\OTERACIL\TEGAFUR
     Dosage: 80 MG, UNK
     Route: 048
     Dates: start: 20150729
  35. PREDONINE [Concomitant]
     Active Substance: PREDNISOLONE
     Indication: LYMPHOMA
     Dosage: 100 MG, UNK
     Route: 048
     Dates: start: 20151009
  36. DEXART [Concomitant]
     Active Substance: DEXAMETHASONE SODIUM PHOSPHATE
     Dosage: 2.5 ML, UNK
     Route: 041
     Dates: start: 20150617, end: 20150617
  37. URSODEOXYCHOLIC ACID [Concomitant]
     Active Substance: URSODIOL
     Dosage: 200 MG, TID
     Route: 048
     Dates: start: 20150203
  38. BISOPROLOL FUMARATE. [Concomitant]
     Active Substance: BISOPROLOL FUMARATE
     Dosage: 2.5 MG, QD
     Route: 048
  39. ONCOVIN [Suspect]
     Active Substance: VINCRISTINE SULFATE
     Indication: LYMPHOMA
     Dosage: 1 MG, UNK
     Route: 041
     Dates: start: 20151009
  40. TS-1 [Concomitant]
     Active Substance: GIMERACIL\OTERACIL\TEGAFUR
     Dosage: 80 MG, UNK
     Route: 048
     Dates: start: 20150916
  41. ELPLAT [Concomitant]
     Active Substance: OXALIPLATIN
     Dosage: 150 MG, UNK
     Route: 041
     Dates: start: 20150318, end: 20150318
  42. ELPLAT [Concomitant]
     Active Substance: OXALIPLATIN
     Dosage: 110 MG, UNK
     Route: 041
     Dates: start: 20150826, end: 20150826
  43. ALOXI [Concomitant]
     Active Substance: PALONOSETRON HYDROCHLORIDE
     Dosage: 50 ML, UNK
     Route: 041
     Dates: start: 20150408, end: 20150408
  44. ALOXI [Concomitant]
     Active Substance: PALONOSETRON HYDROCHLORIDE
     Dosage: 50 ML, UNK
     Route: 041
     Dates: start: 20150708, end: 20150708
  45. ALOXI [Concomitant]
     Active Substance: PALONOSETRON HYDROCHLORIDE
     Dosage: 50 ML, UNK
     Route: 041
     Dates: start: 20150729, end: 20150729
  46. G-LASTA [Suspect]
     Active Substance: PEGFILGRASTIM
     Indication: PRODUCT USED FOR UNKNOWN INDICATION
     Dosage: 3.6 MG, UNK
     Route: 058
  47. TS-1 [Concomitant]
     Active Substance: GIMERACIL\OTERACIL\TEGAFUR
     Indication: GASTRIC CANCER
     Dosage: 100 MG, UNK
     Route: 048
     Dates: start: 20150127
  48. ELPLAT [Concomitant]
     Active Substance: OXALIPLATIN
     Indication: GASTRIC CANCER
     Dosage: 150 MG, UNK
     Route: 041
     Dates: start: 20150206, end: 20150206
  49. ELPLAT [Concomitant]
     Active Substance: OXALIPLATIN
     Dosage: 150 MG, UNK
     Route: 041
     Dates: start: 20150225, end: 20150225
  50. ELPLAT [Concomitant]
     Active Substance: OXALIPLATIN
     Dosage: 150 MG, UNK
     Route: 041
     Dates: start: 20150408, end: 20150408
  51. ALOXI [Concomitant]
     Active Substance: PALONOSETRON HYDROCHLORIDE
     Dosage: 50 ML, UNK
     Route: 041
     Dates: start: 20150617, end: 20150617
  52. MIYA-BM [Concomitant]
     Active Substance: CLOSTRIDIUM BUTYRICUM SPORES STRAIN M-55
     Dosage: 20 MG, TID
     Route: 048
     Dates: start: 20150211
  53. XARELTO [Concomitant]
     Active Substance: RIVAROXABAN
     Dosage: 15 MG, QD
     Route: 048
  54. CRESTOR [Concomitant]
     Active Substance: ROSUVASTATIN CALCIUM
     Dosage: 2.5 MG, QD
     Route: 048
  55. ENDOXAN                            /00021101/ [Suspect]
     Active Substance: CYCLOPHOSPHAMIDE
     Indication: LYMPHOMA
     Dosage: 650 MG, UNK
     Route: 041
     Dates: start: 20151009
  56. TS-1 [Concomitant]
     Active Substance: GIMERACIL\OTERACIL\TEGAFUR
     Dosage: 100 MG, UNK
     Route: 048
     Dates: start: 20150318
  57. TS-1 [Concomitant]
     Active Substance: GIMERACIL\OTERACIL\TEGAFUR
     Dosage: 80 MG, UNK
     Route: 048
     Dates: start: 20150826
  58. PREDONINE [Concomitant]
     Active Substance: PREDNISOLONE
     Indication: LYMPHOMA
  59. ALOXI [Concomitant]
     Active Substance: PALONOSETRON HYDROCHLORIDE
     Dosage: 50 ML, UNK
     Route: 041
     Dates: start: 20150225, end: 20150225
  60. ALOXI [Concomitant]
     Active Substance: PALONOSETRON HYDROCHLORIDE
     Dosage: 50 ML, UNK
     Route: 041
     Dates: start: 20150527, end: 20150527
  61. DEXART [Concomitant]
     Active Substance: DEXAMETHASONE SODIUM PHOSPHATE
     Dosage: 2.5 ML, UNK
     Route: 041
     Dates: start: 20150408, end: 20150408
  62. DEXART [Concomitant]
     Active Substance: DEXAMETHASONE SODIUM PHOSPHATE
     Dosage: 2.5 ML, UNK
     Route: 041
     Dates: start: 20150708, end: 20150708
  63. FEXOFENADINE HYDROCHLORIDE. [Concomitant]
     Active Substance: FEXOFENADINE HYDROCHLORIDE
     Dosage: 60 MG, BID
     Route: 048
     Dates: start: 20150916
  64. TENELIA [Concomitant]
     Active Substance: TENELIGLIPTIN
     Dosage: 20 MG, QD
     Route: 048
  65. MAGMITT [Concomitant]
     Active Substance: MAGNESIUM OXIDE
     Dosage: 660 MG, TID
     Route: 048
     Dates: start: 20151011

REACTIONS (2)
  - Cerebral infarction [Fatal]
  - Platelet count decreased [Not Recovered/Not Resolved]

NARRATIVE: CASE EVENT DATE: 20151015
